FAERS Safety Report 9752173 (Version 2)
Quarter: 2015Q1

REPORT INFORMATION
  Report Type: Spontaneous
  Country: FR (occurrence: FR)
  Receive Date: 20131213
  Receipt Date: 20150210
  Transmission Date: 20150721
  Serious: Yes (Hospitalization)
  Sender: FDA-Public Use
  Company Number: FR-ROCHE-1318359

PATIENT
  Age: 60 Year
  Sex: Female

DRUGS (10)
  1. POTASSIUM CITRATE. [Concomitant]
     Active Substance: POTASSIUM CITRATE
  2. ROACTEMRA [Suspect]
     Active Substance: TOCILIZUMAB
     Indication: RHEUMATOID ARTHRITIS
     Dosage: 20 MG/ML
     Route: 041
     Dates: start: 200901, end: 20120209
  3. MICARDIS [Concomitant]
     Active Substance: TELMISARTAN
  4. TAHOR [Concomitant]
     Active Substance: ATORVASTATIN CALCIUM
  5. IXPRIM [Concomitant]
     Active Substance: ACETAMINOPHEN\TRAMADOL HYDROCHLORIDE
  6. ROACTEMRA [Suspect]
     Active Substance: TOCILIZUMAB
     Route: 065
     Dates: start: 201106
  7. CORTANCYL [Concomitant]
     Active Substance: PREDNISONE
  8. SPECIAFOLDINE [Concomitant]
     Active Substance: FOLIC ACID
  9. METOJECT [Concomitant]
     Active Substance: METHOTREXATE SODIUM
     Dosage: 10 MG/ML
     Route: 065
  10. LYRICA [Concomitant]
     Active Substance: PREGABALIN

REACTIONS (1)
  - Nephrocalcinosis [Recovered/Resolved with Sequelae]

NARRATIVE: CASE EVENT DATE: 201202
